FAERS Safety Report 10518782 (Version 2)
Quarter: 2014Q4

REPORT INFORMATION
  Report Type: Spontaneous
  Country: US (occurrence: US)
  Receive Date: 20141015
  Receipt Date: 20141015
  Transmission Date: 20150528
  Serious: Yes (Hospitalization)
  Sender: FDA-Public Use
  Company Number: CHPA2014US010449

PATIENT
  Age: 49 Year
  Sex: Female

DRUGS (1)
  1. KERI ORIGINAL [Suspect]
     Active Substance: LANOLIN\MINERAL OIL
     Indication: DRY SKIN PROPHYLAXIS
     Dosage: UNK, ONCE/SINGLE
     Route: 061
     Dates: start: 20140701, end: 20140702

REACTIONS (3)
  - Application site burn [Recovered/Resolved]
  - Application site exfoliation [Recovered/Resolved]
  - Application site discharge [Recovered/Resolved]

NARRATIVE: CASE EVENT DATE: 20140729
